FAERS Safety Report 21817625 (Version 1)
Quarter: 2023Q1

REPORT INFORMATION
  Report Type: Spontaneous
  Country: US (occurrence: US)
  Receive Date: 20230104
  Receipt Date: 20230104
  Transmission Date: 20230418
  Serious: No
  Sender: FDA-Public Use
  Company Number: US-COOPERSURGICAL, INC.-US-2021CPS003606

PATIENT
  Age: 42 Year
  Sex: Female
  Weight: 59.864 kg

DRUGS (2)
  1. PARAGARD T 380A [Suspect]
     Active Substance: COPPER
     Indication: Contraception
     Dosage: UNK
     Route: 015
     Dates: start: 20211122, end: 20211122
  2. PARAGARD T 380A [Suspect]
     Active Substance: COPPER
     Dosage: UNK
     Route: 015
     Dates: start: 20211122

REACTIONS (2)
  - Complication of device insertion [Recovered/Resolved]
  - Unintentional medical device removal [Unknown]

NARRATIVE: CASE EVENT DATE: 20211122
